FAERS Safety Report 6725901-0 (Version None)
Quarter: 2010Q2

REPORT INFORMATION
  Report Type: 
  Country: None (occurrence: None)
  Receive Date: 20100514
  Receipt Date: 20100420
  Transmission Date: 20101027
  Serious: Yes (Hospitalization)
  Sender: FDA-Public Use
  Company Number: PHHY2010US25765

PATIENT
  Sex: Male

DRUGS (3)
  1. GLEEVEC [Suspect]
     Indication: CHRONIC MYELOID LEUKAEMIA
     Dosage: 400 MG, BID
  2. GLEEVEC [Interacting]
     Dosage: 400 MG, QD
     Route: 048
  3. HMG COA REDUCTASE INHIBITORS [Interacting]

REACTIONS (5)
  - ACCIDENTAL OVERDOSE [None]
  - BLOOD BILIRUBIN INCREASED [None]
  - DRUG INTERACTION [None]
  - RENAL IMPAIRMENT [None]
  - RHABDOMYOLYSIS [None]
